FAERS Safety Report 7113419-5 (Version None)
Quarter: 2010Q4

REPORT INFORMATION
  Report Type: 
  Country: None (occurrence: None)
  Receive Date: 20101119
  Receipt Date: 20100921
  Transmission Date: 20110411
  Serious: No
  Sender: FDA-Public Use
  Company Number: A0883245A

PATIENT
  Sex: Female

DRUGS (1)
  1. ARZERRA [Suspect]
     Route: 042
     Dates: start: 20100921, end: 20100921

REACTIONS (4)
  - COUGH [None]
  - HYPERHIDROSIS [None]
  - ILL-DEFINED DISORDER [None]
  - NAUSEA [None]
